FAERS Safety Report 9848993 (Version 1)
Quarter: 2014Q1

REPORT INFORMATION
  Report Type: Spontaneous
  Country: US (occurrence: None)
  Receive Date: 20140124
  Receipt Date: 20140124
  Transmission Date: 20141002
  Serious: Yes (Hospitalization)
  Sender: FDA-Public Use
  Company Number: None

PATIENT
  Age: 56 Year
  Sex: Male
  Weight: 68 kg

DRUGS (1)
  1. CETUXIMAB [Suspect]

REACTIONS (4)
  - Malaise [None]
  - Pyrexia [None]
  - Lymphopenia [None]
  - Refusal of treatment by patient [None]
